FAERS Safety Report 6686865-1 (Version None)
Quarter: 2010Q2

REPORT INFORMATION
  Report Type: 
  Country: None (occurrence: None)
  Receive Date: 20100416
  Receipt Date: 20100416
  Transmission Date: 20101027
  Serious: Yes (Other)
  Sender: FDA-Public Use
  Company Number: None

PATIENT
  Age: 74 Year
  Sex: Male
  Weight: 95.2554 kg

DRUGS (4)
  1. CIPROFLOXACIN [Suspect]
     Indication: BENIGN PROSTATIC HYPERPLASIA
     Dosage: 1 TABLET TWICE DAILY ORAL
     Route: 048
     Dates: start: 20100319
  2. CIPROFLOXACIN [Suspect]
     Indication: PROSTATE INFECTION
     Dosage: 1 TABLET TWICE DAILY ORAL
     Route: 048
     Dates: start: 20100319
  3. CIPROFLOXACIN [Suspect]
     Indication: BENIGN PROSTATIC HYPERPLASIA
     Dosage: 1 TABLET TWICE DAILY ORAL
     Route: 048
     Dates: start: 20100320
  4. CIPROFLOXACIN [Suspect]
     Indication: PROSTATE INFECTION
     Dosage: 1 TABLET TWICE DAILY ORAL
     Route: 048
     Dates: start: 20100320

REACTIONS (3)
  - BLOOD PRESSURE DECREASED [None]
  - DIZZINESS [None]
  - PRESYNCOPE [None]
